FAERS Safety Report 7499384-X (Version None)
Quarter: 2011Q2

REPORT INFORMATION
  Report Type: 
  Country: None (occurrence: None)
  Receive Date: 20110516
  Receipt Date: 20110429
  Transmission Date: 20111010
  Serious: Yes (Other)
  Sender: FDA-Public Use
  Company Number: 2011SP012305

PATIENT
  Age: 63 Year
  Sex: Female
  Weight: 72.5755 kg

DRUGS (9)
  1. PREDNISONE [Concomitant]
  2. PRILOSEC [Concomitant]
  3. OLMESARTAN MEDOXOMIL [Concomitant]
  4. IBUPROFEN [Concomitant]
  5. HUMIRA [Concomitant]
  6. LEVOTHYROXINE DOSIUM [Concomitant]
  7. MIRALAX [Suspect]
     Indication: COLONOSCOPY
     Dosage: PO
     Route: 048
     Dates: start: 20101020, end: 20101020
  8. ERGOCALCIFEROL [Concomitant]
  9. SILICON DIOXIDE W/SIMETICONE [Concomitant]

REACTIONS (5)
  - POLYP [None]
  - RENAL FUNCTION TEST ABNORMAL [None]
  - VOMITING [None]
  - BLOOD PRESSURE DECREASED [None]
  - DEHYDRATION [None]
